FAERS Safety Report 8112307-5 (Version None)
Quarter: 2012Q1

REPORT INFORMATION
  Report Type: 
  Country: None (occurrence: None)
  Receive Date: 20120202
  Receipt Date: 20120202
  Transmission Date: 20120608
  Serious: Yes (Hospitalization)
  Sender: FDA-Public Use
  Company Number: None

PATIENT
  Age: 31 Year
  Sex: Male

DRUGS (1)
  1. ZIPRASIDONE HYDROCHLORIDE [Suspect]
     Indication: BIPOLAR DISORDER
     Dosage: 180MG QD 047
     Route: 048

REACTIONS (2)
  - PAINFUL ERECTION [None]
  - PRIAPISM [None]
